FAERS Safety Report 9804050 (Version 1)
Quarter: 2014Q1

REPORT INFORMATION
  Report Type: Spontaneous
  Country: US (occurrence: None)
  Receive Date: 20140107
  Receipt Date: 20140107
  Transmission Date: 20141002
  Serious: No
  Sender: FDA-Public Use
  Company Number: None

PATIENT
  Age: 48 Year
  Sex: Female
  Weight: 112 kg

DRUGS (1)
  1. DICLOFENAC [Suspect]
     Route: 048
     Dates: start: 20130302, end: 20130302

REACTIONS (2)
  - Anaphylactic reaction [None]
  - Anxiety [None]
